FAERS Safety Report 8024048-3 (Version None)
Quarter: 2012Q1

REPORT INFORMATION
  Report Type: 
  Country: None (occurrence: None)
  Receive Date: 20120105
  Receipt Date: 20111229
  Transmission Date: 20120608
  Serious: Yes (Other)
  Sender: FDA-Public Use
  Company Number: CA-JNJFOC-20120100210

PATIENT
  Sex: Female
  Weight: 68 kg

DRUGS (4)
  1. METHOTREXATE [Concomitant]
     Route: 065
  2. REMICADE [Suspect]
     Indication: COLITIS ULCERATIVE
     Route: 042
     Dates: start: 20110223
  3. MESALAMINE [Concomitant]
     Route: 065
  4. REMICADE [Suspect]
     Dosage: LAST INFUSION
     Route: 042
     Dates: start: 20111107

REACTIONS (2)
  - ERYTHEMA NODOSUM [None]
  - INFLUENZA LIKE ILLNESS [None]
